FAERS Safety Report 10208673 (Version 5)
Quarter: 2018Q3

REPORT INFORMATION
  Report Type: Spontaneous
  Country: US (occurrence: US)
  Receive Date: 20140530
  Receipt Date: 20180814
  Transmission Date: 20181010
  Serious: Yes (Hospitalization, Disabling, Other)
  Sender: FDA-Public Use
  Company Number: US-009507513-1405USA011495

PATIENT
  Sex: Female

DRUGS (3)
  1. CALCIUM (UNSPECIFIED) [Concomitant]
     Active Substance: CALCIUM
     Dosage: UNK
     Route: 065
     Dates: start: 2001
  2. VITAMIN D [Concomitant]
     Active Substance: CHOLECALCIFEROL
     Dosage: UNK
     Route: 065
     Dates: start: 2001
  3. FOSAMAX [Suspect]
     Active Substance: ALENDRONATE SODIUM
     Indication: OSTEOPOROSIS
     Dosage: 70 MG, QW
     Route: 048
     Dates: start: 199806, end: 201110

REACTIONS (10)
  - Blood cholesterol increased [Unknown]
  - Femur fracture [Unknown]
  - Diabetes mellitus [Unknown]
  - Low turnover osteopathy [Unknown]
  - Biliary cirrhosis [Unknown]
  - Fall [Unknown]
  - Osteoporosis [Unknown]
  - Connective tissue disorder [Unknown]
  - Atypical femur fracture [Unknown]
  - Hypertension [Unknown]

NARRATIVE: CASE EVENT DATE: 2001
